FAERS Safety Report 9161188 (Version 1)
Quarter: 2013Q1

REPORT INFORMATION
  Report Type: Spontaneous
  Country: HR (occurrence: HR)
  Receive Date: 20130313
  Receipt Date: 20130313
  Transmission Date: 20140127
  Serious: Yes (Life-Threatening, Hospitalization)
  Sender: FDA-Public Use
  Company Number: HR-009507513-1303HRV004100

PATIENT
  Age: 62 Year
  Sex: Male

DRUGS (6)
  1. TEMODAL [Suspect]
     Indication: GLIOBLASTOMA
     Dosage: 160 MG, QD
     Route: 048
     Dates: start: 20130116, end: 20130225
  2. SINERSUL [Concomitant]
     Dosage: UNK, QW
     Route: 048
     Dates: start: 20130116, end: 20130302
  3. TEGRETOL [Concomitant]
     Dosage: 300 MG, QD
     Route: 048
     Dates: start: 20130116, end: 20130302
  4. DEXAMETHASONE [Concomitant]
     Dosage: 8 MG, QD
     Route: 048
     Dates: start: 20130116, end: 20130204
  5. DEXAMETHASONE [Concomitant]
     Dosage: 4 MG, QD
     Route: 048
     Dates: start: 20130205, end: 20130212
  6. CONTROLOC [Concomitant]

REACTIONS (7)
  - Pharyngeal oedema [Unknown]
  - Rash [Not Recovered/Not Resolved]
  - Pruritus [Unknown]
  - Oedema mucosal [Unknown]
  - Rash generalised [Unknown]
  - Dermatitis exfoliative [Unknown]
  - Epidermolysis [Unknown]
